FAERS Safety Report 23471295 (Version 1)
Quarter: 2024Q1

REPORT INFORMATION
  Report Type: Spontaneous
  Country: KW (occurrence: KW)
  Receive Date: 20240202
  Receipt Date: 20240202
  Transmission Date: 20240410
  Serious: Yes (Hospitalization, Other)
  Sender: FDA-Public Use
  Company Number: KW-PARATEK PHARMACEUTICALS, INC.-2024PTK00004

PATIENT
  Age: 69 Year
  Sex: Female
  Weight: 63.492 kg

DRUGS (4)
  1. NUZYRA [Suspect]
     Active Substance: OMADACYCLINE
     Indication: Atypical mycobacterial infection
     Dosage: 300 MG, 1X/DAY
     Route: 048
     Dates: start: 20230901, end: 202401
  2. NUZYRA [Suspect]
     Active Substance: OMADACYCLINE
     Indication: Mycobacterium abscessus infection
  3. CLOFAZIMINE [Suspect]
     Active Substance: CLOFAZIMINE
     Dosage: UNK
     Dates: start: 2022
  4. AZITHROMYCIN [Concomitant]
     Active Substance: AZITHROMYCIN

REACTIONS (13)
  - Pneumonia aspiration [Recovering/Resolving]
  - Hiatus hernia [Recovering/Resolving]
  - Gastritis [Recovering/Resolving]
  - Gastrointestinal tract mucosal pigmentation [Recovering/Resolving]
  - Aspartate aminotransferase increased [Recovering/Resolving]
  - Bilirubin conjugated increased [Recovering/Resolving]
  - Alanine aminotransferase increased [Recovering/Resolving]
  - Gamma-glutamyltransferase increased [Recovering/Resolving]
  - Blood bilirubin increased [Not Recovered/Not Resolved]
  - Cough [Unknown]
  - Nausea [Unknown]
  - Vomiting [Unknown]
  - Off label use [Recovered/Resolved]

NARRATIVE: CASE EVENT DATE: 20230901
